FAERS Safety Report 24885702 (Version 2)
Quarter: 2025Q1

REPORT INFORMATION
  Report Type: Report from Study
  Country: GB (occurrence: GB)
  Receive Date: 20250125
  Receipt Date: 20250218
  Transmission Date: 20250408
  Serious: Yes (Other)
  Sender: ABBVIE
  Company Number: GB-ABBVIE-6101909

PATIENT
  Sex: Female

DRUGS (1)
  1. HUMIRA [Suspect]
     Active Substance: ADALIMUMAB
     Indication: Ankylosing spondylitis
     Dosage: 40MG/0.4ML
     Route: 058

REACTIONS (6)
  - Knee arthroplasty [Unknown]
  - Urosepsis [Unknown]
  - Sepsis [Unknown]
  - Thermal burn [Unknown]
  - Kidney infection [Unknown]
  - Urinary tract infection [Unknown]
